FAERS Safety Report 8666082 (Version 2)
Quarter: 2013Q4

REPORT INFORMATION
  Report Type: Spontaneous
  Country: US (occurrence: US)
  Receive Date: 20120716
  Receipt Date: 20131101
  Transmission Date: 20140711
  Serious: No
  Sender: FDA-Public Use
  Company Number: US-009507513-1207USA000859

PATIENT
  Sex: Female

DRUGS (6)
  1. NASONEX [Suspect]
     Indication: HYPERSENSITIVITY
     Dosage: UNK, UNKNOWN
  2. PEPCID [Suspect]
     Dosage: UNK, UNKNOWN
  3. CLARITIN [Suspect]
     Dosage: UNK, UNKNOWN
  4. ZYRTEC [Suspect]
  5. TOPAMAX [Concomitant]
     Dosage: UNK, UNKNOWN
  6. VALIUM [Concomitant]
     Dosage: UNK, UNKNOWN

REACTIONS (1)
  - Migraine [Recovered/Resolved]
